FAERS Safety Report 8041301-8 (Version None)
Quarter: 2012Q1

REPORT INFORMATION
  Report Type: 
  Country: None (occurrence: None)
  Receive Date: 20120109
  Receipt Date: 20111226
  Transmission Date: 20120608
  Serious: Yes (Life-Threatening, Hospitalization, Other)
  Sender: FDA-Public Use
  Company Number: 2011MA018000

PATIENT
  Sex: Female
  Weight: 72.5755 kg

DRUGS (89)
  1. CELEBREX [Concomitant]
  2. PREMARIN [Concomitant]
  3. DIPHENHYDRAMINE HCL [Concomitant]
  4. ANZEMET [Concomitant]
  5. HYDROXYZINE [Concomitant]
  6. DOCUSATE SODIUM [Concomitant]
  7. OYSTER CAL [Concomitant]
  8. POTASSIUM CHLORIDE [Concomitant]
  9. LASIX [Concomitant]
  10. CARDIZEM [Concomitant]
  11. FELODIPINE [Concomitant]
  12. LOPRESSOR [Concomitant]
  13. KEFLEX [Concomitant]
  14. DILANTIN [Concomitant]
  15. PROVENTIL [Concomitant]
  16. FENTANYL [Concomitant]
  17. APAP TAB [Concomitant]
  18. PROTONIX [Concomitant]
  19. AMBIEN [Concomitant]
  20. TIZANIDINE HCL [Concomitant]
  21. HYDROCODONE BITARTRATE [Concomitant]
  22. VANCOMYCIN [Concomitant]
  23. CALCIUM [Concomitant]
  24. CORDARONE [Concomitant]
  25. DIGOXIN [Suspect]
     Indication: PRODUCT USED FOR UNKNOWN INDICATION
     Dosage: 0.25 MG;QD;UNK
     Dates: start: 20071230
  26. DILAUDID [Concomitant]
  27. KETOROLAC TROMETHAMINE [Concomitant]
  28. HYDROCODONE BITARTRATE [Concomitant]
  29. TEMAZEPAM [Concomitant]
  30. MAGNESIUM OXIDE [Concomitant]
  31. VICODIN [Concomitant]
  32. PEPCID [Concomitant]
  33. PHYTONADION [Concomitant]
  34. LEVOPHED [Concomitant]
  35. ATROVENT [Concomitant]
  36. DORIBAX [Concomitant]
  37. BACITRACIN [Concomitant]
  38. PRAVACHOL [Concomitant]
  39. OS-CAL [Concomitant]
  40. SODIUM CHLORIDE [Concomitant]
  41. ONDANSETRON HCL [Concomitant]
  42. METOPROLOL [Concomitant]
  43. FOLIC ACID [Concomitant]
  44. MICAFUNGIN [Concomitant]
  45. ZESTRIL [Concomitant]
  46. NEUPOGEN [Concomitant]
  47. CEREBYX [Concomitant]
  48. PROPOFOL [Concomitant]
  49. VITAMIN K TAB [Concomitant]
  50. INSULIN [Concomitant]
  51. MILK OF MAGNESIA TAB [Concomitant]
  52. TROMETHAMINE [Concomitant]
  53. NEXIUM [Concomitant]
  54. TRIAMTERENE [Concomitant]
  55. VITAMIN D [Concomitant]
  56. ZANAFLEX [Concomitant]
  57. CLARITIN [Concomitant]
  58. LOVENOX [Concomitant]
  59. POTASSIUM CHLORIDE [Concomitant]
  60. VERSED [Concomitant]
  61. PIPERACILLIN [Concomitant]
  62. DEXTROSE [Concomitant]
  63. HYDROCHLOROTHIAZIDE [Concomitant]
  64. TAPAZOLE [Concomitant]
  65. ASPIRIN [Concomitant]
  66. HEPARIN [Concomitant]
  67. LISINOPRIL [Concomitant]
  68. METHOTREXATE [Concomitant]
  69. LEUCOVORIN CALCIUM [Concomitant]
  70. LIPIDS [Concomitant]
  71. PROPRANOLOL [Concomitant]
  72. HYDROMORPHONE HCL [Concomitant]
  73. ANCEF [Concomitant]
  74. ZOVIRAX [Concomitant]
  75. CITALOPRAM HYDROBROMIDE [Concomitant]
  76. XANAX [Concomitant]
  77. FISH OIL [Concomitant]
  78. ACYCLOVIR [Concomitant]
  79. MYCAMINE [Concomitant]
  80. BACTROBAN [Concomitant]
  81. TRIAZOLAM [Concomitant]
  82. PREDNISONE [Concomitant]
  83. AZITHROMYCIN [Concomitant]
  84. PLAVIX [Concomitant]
  85. ALPRAZOLAM [Concomitant]
  86. GEMFIBROZIL [Concomitant]
  87. PLAQUENIL [Concomitant]
  88. AMIODARONE HCL [Concomitant]
  89. BICARBONATE [Concomitant]

REACTIONS (98)
  - PAIN [None]
  - LIGAMENT SPRAIN [None]
  - BLOOD POTASSIUM DECREASED [None]
  - CARDIAC FAILURE CONGESTIVE [None]
  - CEREBRAL INFARCTION [None]
  - STOMATITIS [None]
  - ORAL FUNGAL INFECTION [None]
  - GLOSSITIS [None]
  - DIABETES MELLITUS [None]
  - APLASTIC ANAEMIA [None]
  - AORTIC ANEURYSM [None]
  - VENTRICULAR EXTRASYSTOLES [None]
  - ROTATOR CUFF SYNDROME [None]
  - NAUSEA [None]
  - DIARRHOEA [None]
  - HYPERTHYROIDISM [None]
  - FOOD INTOLERANCE [None]
  - TRANSIENT ISCHAEMIC ATTACK [None]
  - HYPERTENSION [None]
  - DEHYDRATION [None]
  - DYSPHAGIA [None]
  - MUCOSAL INFLAMMATION [None]
  - MULTI-ORGAN FAILURE [None]
  - WOUND [None]
  - PNEUMONITIS [None]
  - DIVERTICULITIS [None]
  - VOMITING [None]
  - LEFT VENTRICULAR DYSFUNCTION [None]
  - UPPER RESPIRATORY TRACT INFECTION [None]
  - CHEST DISCOMFORT [None]
  - PANCYTOPENIA [None]
  - LIP HAEMORRHAGE [None]
  - LOCALISED INFECTION [None]
  - RESPIRATORY FAILURE [None]
  - CARDIO-RESPIRATORY ARREST [None]
  - SEPTIC SHOCK [None]
  - UNRESPONSIVE TO STIMULI [None]
  - MALNUTRITION [None]
  - MYOSITIS [None]
  - OSTEOARTHRITIS [None]
  - NECK PAIN [None]
  - FRACTURE DELAYED UNION [None]
  - ABDOMINAL PAIN [None]
  - HYPOTHYROIDISM [None]
  - GASTRITIS [None]
  - RENAL FAILURE ACUTE [None]
  - CEREBROVASCULAR ACCIDENT [None]
  - ATRIAL FIBRILLATION [None]
  - GLOSSODYNIA [None]
  - METABOLIC ACIDOSIS [None]
  - MENTAL STATUS CHANGES [None]
  - FLUID OVERLOAD [None]
  - DRY GANGRENE [None]
  - EYE BURNS [None]
  - LEFT ATRIAL DILATATION [None]
  - ATELECTASIS [None]
  - BRONCHITIS [None]
  - GAIT DISTURBANCE [None]
  - DYSPNOEA [None]
  - GASTROENTERITIS [None]
  - CLOSTRIDIUM DIFFICILE COLITIS [None]
  - BLISTER [None]
  - NEUROPATHY PERIPHERAL [None]
  - ENCEPHALOPATHY [None]
  - THYROTOXIC CRISIS [None]
  - RENAL CYST [None]
  - PANCREATIC MASS [None]
  - ABDOMINAL PAIN UPPER [None]
  - GASTROOESOPHAGEAL REFLUX DISEASE [None]
  - MUSCULOSKELETAL PAIN [None]
  - CONVULSION [None]
  - LACTIC ACIDOSIS [None]
  - RENAL FAILURE CHRONIC [None]
  - SUPRAVENTRICULAR EXTRASYSTOLES [None]
  - CUSHINGOID [None]
  - FEMORAL NECK FRACTURE [None]
  - HYPOGLYCAEMIA [None]
  - MYALGIA [None]
  - MAGNESIUM METABOLISM DISORDER [None]
  - ELECTROLYTE IMBALANCE [None]
  - ACUTE MYOCARDIAL INFARCTION [None]
  - DIALYSIS [None]
  - SEPSIS [None]
  - HYPERKALAEMIA [None]
  - RENAL TUBULAR NECROSIS [None]
  - PERIPHERAL VASCULAR DISORDER [None]
  - GASTROINTESTINAL HAEMORRHAGE [None]
  - PANCREATIC DISORDER [None]
  - DIVERTICULUM [None]
  - BLOOD CALCIUM DECREASED [None]
  - DYSARTHRIA [None]
  - ARRHYTHMIA [None]
  - FIBROMYALGIA [None]
  - MOUTH HAEMORRHAGE [None]
  - TOXICITY TO VARIOUS AGENTS [None]
  - NEUTROPENIA [None]
  - HEPATIC NECROSIS [None]
  - SINUS TACHYCARDIA [None]
